FAERS Safety Report 9213257 (Version 1)
Quarter: 2013Q2

REPORT INFORMATION
  Report Type: Spontaneous
  Country: US (occurrence: None)
  Receive Date: 20130404
  Receipt Date: 20130404
  Transmission Date: 20140414
  Serious: No
  Sender: FDA-Public Use
  Company Number: None

PATIENT
  Age: 72 Year
  Sex: Female
  Weight: 63.96 kg

DRUGS (1)
  1. HYDRALAZINE [Suspect]
     Indication: HYPERTENSION
     Dates: start: 201211, end: 201302

REACTIONS (6)
  - Feeling hot [None]
  - Insomnia [None]
  - Discomfort [None]
  - Back pain [None]
  - Chromaturia [None]
  - Urine odour abnormal [None]
